FAERS Safety Report 16862411 (Version 5)
Quarter: 2020Q2

REPORT INFORMATION
  Report Type: Report from Study
  Country: US (occurrence: US)
  Receive Date: 20190927
  Receipt Date: 20200603
  Transmission Date: 20200713
  Serious: Yes (Other)
  Sender: FDA-Public Use
  Company Number: US-JNJFOC-20181214446

PATIENT
  Age: 78 Year
  Sex: Female
  Weight: 99.88 kg

DRUGS (4)
  1. OTEZLA [Concomitant]
     Active Substance: APREMILAST
  2. GUSELKUMAB [Suspect]
     Active Substance: GUSELKUMAB
     Indication: PAIN
     Route: 058
  3. STELARA [Suspect]
     Active Substance: USTEKINUMAB
     Indication: PSORIASIS
     Route: 058
     Dates: start: 20181116
  4. STELARA [Suspect]
     Active Substance: USTEKINUMAB
     Indication: PSORIATIC ARTHROPATHY
     Route: 058
     Dates: start: 201811, end: 201812

REACTIONS (13)
  - Psoriatic arthropathy [Not Recovered/Not Resolved]
  - Toothache [Not Recovered/Not Resolved]
  - Nausea [Unknown]
  - Dizziness [Unknown]
  - Weight increased [Not Recovered/Not Resolved]
  - Atrial fibrillation [Recovered/Resolved]
  - Fatigue [Not Recovered/Not Resolved]
  - Product use issue [Unknown]
  - Drug ineffective [Unknown]
  - Influenza like illness [Unknown]
  - Carpal tunnel syndrome [Not Recovered/Not Resolved]
  - Off label use [Unknown]
  - Osteoarthritis [Not Recovered/Not Resolved]

NARRATIVE: CASE EVENT DATE: 201811
